FAERS Safety Report 5736626-2 (Version None)
Quarter: 2008Q2

REPORT INFORMATION
  Report Type: 
  Country: None (occurrence: None)
  Receive Date: 20080513
  Receipt Date: 20080505
  Transmission Date: 20081010
  Serious: Yes (Hospitalization)
  Sender: FDA-Public Use
  Company Number: US-ASTRAZENECA-2008UW09236

PATIENT
  Age: 8712 Day
  Sex: Female

DRUGS (1)
  1. SEROQUEL [Suspect]
     Route: 048
     Dates: start: 20080407, end: 20080428

REACTIONS (3)
  - ANXIETY [None]
  - MENTAL DISORDER [None]
  - SUICIDAL IDEATION [None]
